FAERS Safety Report 23970824 (Version 1)
Quarter: 2024Q2

REPORT INFORMATION
  Report Type: Spontaneous
  Country: US (occurrence: None)
  Receive Date: 20240612
  Receipt Date: 20240612
  Transmission Date: 20240716
  Serious: Yes (Hospitalization)
  Sender: FDA-Public Use
  Company Number: None

PATIENT
  Age: 60 Year
  Sex: Female

DRUGS (3)
  1. AMBRISENTAN [Suspect]
     Active Substance: AMBRISENTAN
     Indication: Pulmonary arterial hypertension
     Dosage: OTHER FREQUENCY : IN THE MORNING ;?
     Route: 048
     Dates: start: 202202
  2. UPTRAVI [Concomitant]
  3. OFEV [Concomitant]
     Active Substance: NINTEDANIB
     Indication: Interstitial lung disease

REACTIONS (6)
  - Dyspnoea [None]
  - Intentional dose omission [None]
  - Therapy change [None]
  - Abdominal distension [None]
  - Abdominal discomfort [None]
  - Hypophagia [None]

NARRATIVE: CASE EVENT DATE: 20240609
